FAERS Safety Report 21740277 (Version 1)
Quarter: 2022Q4

REPORT INFORMATION
  Report Type: Spontaneous
  Country: US (occurrence: None)
  Receive Date: 20221216
  Receipt Date: 20221216
  Transmission Date: 20230113
  Serious: Yes (Disabling, Other)
  Sender: FDA-Public Use
  Company Number: None

PATIENT
  Age: 55 Year
  Sex: Female
  Weight: 65.77 kg

DRUGS (16)
  1. VRAYLAR [Suspect]
     Active Substance: CARIPRAZINE
  2. XANAX [Concomitant]
     Active Substance: ALPRAZOLAM
  3. LAMOTRIGINE [Concomitant]
     Active Substance: LAMOTRIGINE
  4. SERALINE [Concomitant]
  5. ARIPIPRAZOLE [Concomitant]
     Active Substance: ARIPIPRAZOLE
  6. PRIMEDONE [Concomitant]
  7. OMEPRAZOLE [Concomitant]
     Active Substance: OMEPRAZOLE
  8. LISINPRIL [Concomitant]
  9. TRAZODONE [Concomitant]
     Active Substance: TRAZODONE HYDROCHLORIDE
  10. METOPROLOL [Concomitant]
  11. ATORVASTATIN [Concomitant]
     Active Substance: ATORVASTATIN
  12. CANNABIS SATIVA SUBSP. INDICA TOP [Concomitant]
     Active Substance: CANNABIS SATIVA SUBSP. INDICA TOP
  13. MULTI VITAMIN [Concomitant]
  14. FISH OIL [Concomitant]
     Active Substance: FISH OIL
  15. VICKS INHALER AND MENTHOLATUM [Concomitant]
  16. IBPROPHEN [Concomitant]

REACTIONS (6)
  - Tremor [None]
  - Hyperhidrosis [None]
  - Heart rate increased [None]
  - Irregular breathing [None]
  - Presyncope [None]
  - Feeling hot [None]

NARRATIVE: CASE EVENT DATE: 20180101
